FAERS Safety Report 19659165 (Version 1)
Quarter: 2021Q3

REPORT INFORMATION
  Report Type: Spontaneous
  Country: IT (occurrence: IT)
  Receive Date: 20210805
  Receipt Date: 20210805
  Transmission Date: 20211014
  Serious: Yes (Other)
  Sender: FDA-Public Use
  Company Number: IT-ROCHE-2883825

PATIENT
  Age: 57 Year
  Sex: Female

DRUGS (3)
  1. ATEZOLIZUMAB. [Suspect]
     Active Substance: ATEZOLIZUMAB
     Indication: TRIPLE NEGATIVE BREAST CANCER
     Route: 065
  2. NAB?PACLITAXEL [Suspect]
     Active Substance: PACLITAXEL
     Indication: TRIPLE NEGATIVE BREAST CANCER
     Route: 065
  3. OLAPARIB. [Suspect]
     Active Substance: OLAPARIB
     Indication: TRIPLE NEGATIVE BREAST CANCER
     Route: 065

REACTIONS (4)
  - Asthenia [Unknown]
  - Diarrhoea [Unknown]
  - Neutropenia [Unknown]
  - Neoplasm progression [Unknown]

NARRATIVE: CASE EVENT DATE: 202012
